FAERS Safety Report 6766852-5 (Version None)
Quarter: 2010Q2

REPORT INFORMATION
  Report Type: 
  Country: None (occurrence: None)
  Receive Date: 20100611
  Receipt Date: 20100601
  Transmission Date: 20101027
  Serious: Yes (Other)
  Sender: FDA-Public Use
  Company Number: US-WATSON-2010-07406

PATIENT
  Sex: Male

DRUGS (3)
  1. CARTIA XT (WATSON LABORATORIES) [Suspect]
     Indication: HYPERTENSION
     Dosage: UNK
     Route: 048
  2. PRIVINIL [Suspect]
     Indication: DRUG USE FOR UNKNOWN INDICATION
     Dosage: UNK
     Route: 048
  3. HYTRIN [Suspect]
     Indication: DRUG USE FOR UNKNOWN INDICATION
     Dosage: UNK
     Route: 048

REACTIONS (3)
  - DRUG INEFFECTIVE [None]
  - PANCREATITIS [None]
  - POLYARTHRITIS [None]
